FAERS Safety Report 6872240-3 (Version None)
Quarter: 2010Q3

REPORT INFORMATION
  Report Type: 
  Country: None (occurrence: None)
  Receive Date: 20100723
  Receipt Date: 20100712
  Transmission Date: 20110219
  Serious: Yes (Other)
  Sender: FDA-Public Use
  Company Number: US-ELI_LILLY_AND_COMPANY-US201007003198

PATIENT
  Sex: Female

DRUGS (2)
  1. FORTEO [Suspect]
     Indication: OSTEOPOROSIS
     Dosage: 20 UG, DAILY (1/D)
     Route: 065
     Dates: start: 20100429
  2. PREDNISONE [Concomitant]
     Indication: AUTOIMMUNE DISORDER

REACTIONS (3)
  - BLOOD CALCIUM INCREASED [None]
  - HEPATIC ENZYME INCREASED [None]
  - NEPHROLITHIASIS [None]
